FAERS Safety Report 25377102 (Version 1)
Quarter: 2025Q2

REPORT INFORMATION
  Report Type: Spontaneous
  Country: IT (occurrence: IT)
  Receive Date: 20250530
  Receipt Date: 20250530
  Transmission Date: 20250716
  Serious: Yes (Other)
  Sender: RANBAXY
  Company Number: IT-SUN PHARMACEUTICAL INDUSTRIES LTD-2025RR-509543

PATIENT
  Age: 37 Year
  Sex: Male

DRUGS (3)
  1. OCTREOTIDE [Suspect]
     Active Substance: OCTREOTIDE
     Indication: Persistent generalised lymphadenopathy
     Route: 065
  2. SUNITINIB [Suspect]
     Active Substance: SUNITINIB
     Indication: Persistent generalised lymphadenopathy
     Dosage: 25 MILLIGRAM, DAILY
     Route: 065
  3. SUNITINIB [Suspect]
     Active Substance: SUNITINIB
     Dosage: 37.5 MILLIGRAM, DAILY
     Route: 065

REACTIONS (2)
  - Disease progression [Unknown]
  - Hypertension [Unknown]
